FAERS Safety Report 4788718-2 (Version None)
Quarter: 2005Q4

REPORT INFORMATION
  Report Type: 
  Country: None (occurrence: None)
  Receive Date: 20051003
  Receipt Date: 20050907
  Transmission Date: 20060501
  Serious: Yes (Other)
  Sender: FDA-Public Use
  Company Number: 2005125941

PATIENT
  Age: 94 Year
  Sex: Male

DRUGS (2)
  1. ZMAX [Suspect]
     Indication: ILL-DEFINED DISORDER
     Dosage: (ONCE)
  2. DRUG, UNSPECIFIED [Concomitant]

REACTIONS (3)
  - SWELLING FACE [None]
  - SWOLLEN TONGUE [None]
  - TREMOR [None]
